FAERS Safety Report 11458052 (Version 13)
Quarter: 2015Q4

REPORT INFORMATION
  Report Type: Report from Study
  Country: JP (occurrence: JP)
  Receive Date: 20150904
  Receipt Date: 20151103
  Transmission Date: 20160304
  Serious: Yes (Death, Hospitalization, Other)
  Sender: FDA-Public Use
  Company Number: JP-FERRINGPH-2015FE02626

PATIENT

DRUGS (8)
  1. THYRADIN S [Concomitant]
     Active Substance: LEVOTHYROXINE SODIUM
     Dosage: UNK
  2. NORVASC [Concomitant]
     Active Substance: AMLODIPINE BESYLATE
     Dosage: UNK
  3. RANMARK [Suspect]
     Active Substance: DENOSUMAB
     Indication: PROSTATE CANCER METASTATIC
     Dosage: 120 MG, 1 TIME DAILY
     Route: 058
     Dates: start: 20130701
  4. DEGARELIX [Suspect]
     Active Substance: DEGARELIX
     Indication: PROSTATE CANCER METASTATIC
     Dosage: 240 MG, ONCE/SINGLE
     Route: 058
     Dates: start: 20130701
  5. DEGARELIX [Suspect]
     Active Substance: DEGARELIX
     Dosage: 80 MG, MONTHLY
     Route: 058
     Dates: start: 20130729
  6. CASODEX [Suspect]
     Active Substance: BICALUTAMIDE
     Indication: PROSTATE CANCER METASTATIC
     Dosage: 80 MG, 1 TIME DAILY
     Route: 048
     Dates: start: 20150608, end: 20150716
  7. CLARITH [Suspect]
     Active Substance: CLARITHROMYCIN
     Indication: OSTEONECROSIS OF JAW
     Dosage: 400 MG, 1 TIME DAILY
     Route: 048
     Dates: start: 20150619, end: 20150703
  8. OLMETEC [Concomitant]
     Active Substance: OLMESARTAN MEDOXOMIL
     Dosage: UNK

REACTIONS (2)
  - Interstitial lung disease [Fatal]
  - Osteonecrosis of jaw [Recovering/Resolving]

NARRATIVE: CASE EVENT DATE: 20150225
